FAERS Safety Report 5197927-2 (Version None)
Quarter: 2007Q1

REPORT INFORMATION
  Report Type: 
  Country: None (occurrence: None)
  Receive Date: 20070104
  Receipt Date: 20061226
  Transmission Date: 20070707
  Serious: Yes (Other)
  Sender: FDA-Public Use
  Company Number: PHFR2006GB03759

PATIENT
  Age: 37 Year
  Sex: Male

DRUGS (3)
  1. TEGRETOL [Suspect]
     Indication: EPILEPSY
     Dosage: 1600MG/DAY
  2. TOPAMAX [Suspect]
     Indication: EPILEPSY
  3. PHENYTOIN SODIUM CAP [Suspect]
     Indication: EPILEPSY

REACTIONS (6)
  - CONFUSIONAL STATE [None]
  - DEPRESSION [None]
  - MENTAL DISORDER [None]
  - MENTAL IMPAIRMENT [None]
  - PARANOIA [None]
  - PRESCRIBED OVERDOSE [None]
